FAERS Safety Report 7623436-4 (Version None)
Quarter: 2011Q3

REPORT INFORMATION
  Report Type: 
  Country: None (occurrence: None)
  Receive Date: 20110720
  Receipt Date: 20110705
  Transmission Date: 20111222
  Serious: Yes (Hospitalization)
  Sender: FDA-Public Use
  Company Number: RO-SANOFI-AVENTIS-2011SA044461

PATIENT
  Age: 72 Year
  Sex: Female
  Weight: 75 kg

DRUGS (8)
  1. DRONEDARONE HCL [Suspect]
     Indication: ATRIAL FIBRILLATION
     Route: 048
     Dates: start: 20110228, end: 20110323
  2. DIGOXIN [Concomitant]
  3. ACENOCOUMAROL [Concomitant]
  4. IRBESARTAN [Concomitant]
  5. CARVEDILOL [Concomitant]
     Dates: start: 20110324
  6. CARVEDILOL [Concomitant]
  7. DIURETICS [Concomitant]
     Dates: start: 20110328
  8. DIURETICS [Concomitant]

REACTIONS (1)
  - CARDIAC FAILURE [None]
